FAERS Safety Report 12147479 (Version 1)
Quarter: 2016Q1

REPORT INFORMATION
  Report Type: Spontaneous
  Country: GB (occurrence: GB)
  Receive Date: 20160304
  Receipt Date: 20160304
  Transmission Date: 20160526
  Serious: Yes (Other)
  Sender: FDA-Public Use
  Company Number: GB-GLAXOSMITHKLINE-GB2016029864

PATIENT
  Age: 72 Year
  Sex: Female
  Weight: 66 kg

DRUGS (12)
  1. MACROGOL [Concomitant]
     Active Substance: POLYETHYLENE GLYCOLS
     Dosage: NIGHTLY
     Dates: start: 20150319
  2. CEFUROXIME. [Suspect]
     Active Substance: CEFUROXIME
     Indication: PRODUCT USED FOR UNKNOWN INDICATION
     Dates: start: 20160222
  3. CETRABEN EMOLLIENT CREAM [Concomitant]
     Dosage: USE AS NEEDED
     Dates: start: 20150616
  4. FML [Concomitant]
     Active Substance: FLUOROMETHOLONE
     Dosage: 1 GTT, UNK
     Route: 050
     Dates: start: 20160209, end: 20160216
  5. PREGABALIN. [Concomitant]
     Active Substance: PREGABALIN
     Dosage: 2 MORNING AND 1 NIGHT FOR 2 WEEKS, THEN 1 AND 1 FOR 1 WEEK THEN 25MG A DAY FOR A WEEK
     Dates: start: 20160209, end: 20160211
  6. OMEPRAZOLE. [Concomitant]
     Active Substance: OMEPRAZOLE
     Dosage: 1 DF, QD
     Dates: start: 20151207, end: 20160104
  7. SIMVASTATIN. [Concomitant]
     Active Substance: SIMVASTATIN
     Dosage: AT NIGHT
     Dates: start: 20151102
  8. PARACETAMOL [Concomitant]
     Active Substance: ACETAMINOPHEN
     Dosage: TAKE 1 OR 2 4 TIMES/DAY
     Dates: start: 20151013
  9. RAMIPRIL. [Concomitant]
     Active Substance: RAMIPRIL
     Dosage: 1 DF, QD
     Dates: start: 20150921
  10. AVAMYS [Concomitant]
     Active Substance: FLUTICASONE FUROATE
     Dosage: 2 PUFFS TO EACH NOSTRIL
     Route: 045
     Dates: start: 20140612
  11. HYDROCORTISONE. [Concomitant]
     Active Substance: HYDROCORTISONE
     Dosage: 1 DF, BID
     Dates: start: 20151124, end: 20151125
  12. LYRICA [Concomitant]
     Active Substance: PREGABALIN
     Dosage: 1 DF, BID
     Dates: start: 20150820, end: 20160209

REACTIONS (3)
  - Vomiting [Recovering/Resolving]
  - Abdominal pain [Recovering/Resolving]
  - Nausea [Recovering/Resolving]

NARRATIVE: CASE EVENT DATE: 20160222
